FAERS Safety Report 4799897-5 (Version None)
Quarter: 2005Q4

REPORT INFORMATION
  Report Type: 
  Country: None (occurrence: None)
  Receive Date: 20051013
  Receipt Date: 20050930
  Transmission Date: 20060501
  Serious: Yes (Other)
  Sender: FDA-Public Use
  Company Number: HQWYE812003OCT05

PATIENT
  Age: 80 Year
  Sex: Female

DRUGS (2)
  1. MINOCIN [Suspect]
     Indication: INFECTION
     Dosage: 100 MG DAILY INTRAVENOUS DRIP
     Route: 041
     Dates: start: 20050928, end: 20050928
  2. SOLITA-T3 (POTASSIUM CHLORIDE/SODIUM CHLORIDE/SODIUM LACTATE) [Concomitant]

REACTIONS (4)
  - BLOOD PRESSURE DECREASED [None]
  - FEELING ABNORMAL [None]
  - FLUSHING [None]
  - URTICARIA [None]
